FAERS Safety Report 8537659-3 (Version None)
Quarter: 2012Q3

REPORT INFORMATION
  Report Type: 
  Country: None (occurrence: None)
  Receive Date: 20120725
  Receipt Date: 20120712
  Transmission Date: 20120928
  Serious: No
  Sender: FDA-Public Use
  Company Number: US-ASTRAZENECA-2012SE25673

PATIENT
  Age: 57 Year
  Sex: Female
  Weight: 67.1 kg

DRUGS (6)
  1. VAGIFEM [Concomitant]
  2. TYLENOL [Concomitant]
  3. PATANOL [Concomitant]
  4. RHINOCORT [Suspect]
     Indication: SEASONAL ALLERGY
     Dosage: 1 SPRAY EACH NOSTRIL
     Route: 045
     Dates: start: 20041201
  5. NASONEX [Concomitant]
  6. CLARITIN [Concomitant]

REACTIONS (5)
  - PALPITATIONS [None]
  - OFF LABEL USE [None]
  - ADVERSE EVENT [None]
  - DIZZINESS [None]
  - DYSPNOEA [None]
